FAERS Safety Report 15167375 (Version 1)
Quarter: 2018Q3

REPORT INFORMATION
  Report Type: Spontaneous
  Country: US (occurrence: US)
  Receive Date: 20180719
  Receipt Date: 20180719
  Transmission Date: 20181010
  Serious: No
  Sender: FDA-Public Use
  Company Number: US-LANNETT COMPANY, INC.-US-2017LAN001145

PATIENT
  Sex: Male

DRUGS (1)
  1. MORPHINE SULFATE. [Suspect]
     Active Substance: MORPHINE SULFATE
     Indication: PAIN
     Dosage: 1.1.5 ML/4?6 HOURS, (STRENGTH 100MG/5ML)
     Route: 048
     Dates: start: 2017

REACTIONS (1)
  - Abdominal pain upper [Not Recovered/Not Resolved]
